FAERS Safety Report 16397485 (Version 2)
Quarter: 2019Q2

REPORT INFORMATION
  Report Type: Spontaneous
  Country: PL (occurrence: PL)
  Receive Date: 20190606
  Receipt Date: 20190612
  Transmission Date: 20190711
  Serious: Yes (Death, Disabling, Other)
  Sender: FDA-Public Use
  Company Number: PL-SUN PHARMACEUTICAL INDUSTRIES LTD-2019RR-209020

PATIENT
  Age: 64 Year
  Sex: Female

DRUGS (8)
  1. OLANZAPINE. [Suspect]
     Active Substance: OLANZAPINE
     Indication: INITIAL INSOMNIA
     Dosage: 10 MG (TAKEN BEFORE GOING TO SLEEP)
     Route: 065
  2. LOW MOLECULAR WEIGHT HEPARIN [Concomitant]
     Active Substance: UNSPECIFIED INGREDIENT
     Indication: PRODUCT USED FOR UNKNOWN INDICATION
     Dosage: UNK (AT A PROPHYLACTIC DOSE)
     Route: 065
  3. POTASSIUM SALTS [Concomitant]
     Active Substance: UNSPECIFIED INGREDIENT
     Indication: PRODUCT USED FOR UNKNOWN INDICATION
     Dosage: UNK
     Route: 065
  4. FUROSEMIDE. [Suspect]
     Active Substance: FUROSEMIDE
     Indication: PRODUCT USED FOR UNKNOWN INDICATION
     Dosage: 60 MG, QD
     Route: 065
  5. MORPHINE [Interacting]
     Active Substance: MORPHINE
     Indication: NEURALGIA
     Dosage: 240 MG, QD
     Route: 048
  6. FUROSEMIDE. [Suspect]
     Active Substance: FUROSEMIDE
     Dosage: UNK
     Route: 065
  7. AMITRIPTYLINE [Interacting]
     Active Substance: AMITRIPTYLINE
     Indication: NEURALGIA
     Dosage: 150 MG, QD (3 X 50 G)
     Route: 065
  8. FLUCONAZOLE. [Interacting]
     Active Substance: FLUCONAZOLE
     Indication: FUNGAL INFECTION
     Dosage: 200 MG, QD
     Route: 048

REACTIONS (13)
  - Drug interaction [Unknown]
  - Dyspnoea [Fatal]
  - Cardio-respiratory arrest [Fatal]
  - Cough [Fatal]
  - Nausea [Recovered/Resolved]
  - Somnolence [Unknown]
  - Pulmonary embolism [Fatal]
  - Oedema peripheral [Fatal]
  - Haemoptysis [Fatal]
  - Cyanosis [Fatal]
  - Confusional state [Unknown]
  - Chest pain [Fatal]
  - Cardiac arrest [Fatal]
